APPROVED DRUG PRODUCT: GRANISETRON HYDROCHLORIDE
Active Ingredient: GRANISETRON HYDROCHLORIDE
Strength: EQ 1MG BASE
Dosage Form/Route: TABLET;ORAL
Application: A078843 | Product #001
Applicant: APOTEX INC
Approved: Feb 27, 2008 | RLD: No | RS: No | Type: DISCN